FAERS Safety Report 19140062 (Version 1)
Quarter: 2021Q2

REPORT INFORMATION
  Report Type: Spontaneous
  Country: US (occurrence: US)
  Receive Date: 20210415
  Receipt Date: 20210415
  Transmission Date: 20210717
  Serious: No
  Sender: FDA-Public Use
  Company Number: US-DUCHESNAY-2020US000101

PATIENT
  Age: 70 Year
  Sex: Female

DRUGS (4)
  1. GABAPENTIN. [Concomitant]
     Active Substance: GABAPENTIN
     Indication: PRODUCT USED FOR UNKNOWN INDICATION
     Dosage: LOW DOSE
     Route: 065
  2. LISINOPRIL. [Concomitant]
     Active Substance: LISINOPRIL
     Indication: BLOOD PRESSURE ABNORMAL
     Dosage: 5 MILLIGRAM, QD
     Route: 065
  3. OSPHENA [Suspect]
     Active Substance: OSPEMIFENE
     Indication: DYSPAREUNIA
     Dosage: 1 TABLET IN THE EVENING WITH FOOD
     Route: 048
     Dates: start: 20200928, end: 20200930
  4. OSPHENA [Suspect]
     Active Substance: OSPEMIFENE
     Dosage: 1 TABLET IN THE MORNING WITH FOOD
     Route: 048
     Dates: start: 20201001, end: 20201002

REACTIONS (2)
  - Intentional dose omission [Unknown]
  - Initial insomnia [Recovered/Resolved]

NARRATIVE: CASE EVENT DATE: 20200929
